FAERS Safety Report 9921653 (Version 1)
Quarter: 2014Q1

REPORT INFORMATION
  Report Type: Not Available
  Country: GB (occurrence: GB)
  Receive Date: 20140225
  Receipt Date: 20140225
  Transmission Date: 20141002
  Serious: Yes (Hospitalization, Other)
  Sender: FDA-Public Use
  Company Number: GB-ASTELLAS-2014EU001366

PATIENT
  Age: 38 Year
  Sex: Female
  Weight: 75 kg

DRUGS (4)
  1. BETMIGA [Suspect]
     Indication: HYPERTONIC BLADDER
     Dosage: 50 MG, UNKNOWN/D
     Route: 048
     Dates: start: 20131107, end: 20131209
  2. BETMIGA [Suspect]
     Dosage: 25 MG, UNKNOWN/D
     Route: 048
     Dates: start: 20131029, end: 20131107
  3. FLUCLOXACILLIN [Concomitant]
     Dosage: UNK
     Route: 065
  4. RIZATRIPTAN [Concomitant]
     Dosage: UNK
     Route: 065

REACTIONS (3)
  - Atrioventricular block [Recovered/Resolved]
  - Palpitations [Recovered/Resolved]
  - Vertigo [Recovered/Resolved]
